FAERS Safety Report 10524880 (Version 1)
Quarter: 2014Q4

REPORT INFORMATION
  Report Type: Spontaneous
  Country: US (occurrence: US)
  Receive Date: 20141017
  Receipt Date: 20141017
  Transmission Date: 20150528
  Serious: No
  Sender: FDA-Public Use
  Company Number: US-PFIZER INC-2014283172

PATIENT
  Age: 75 Year
  Sex: Female
  Weight: 43 kg

DRUGS (1)
  1. COLESTID [Suspect]
     Active Substance: COLESTIPOL HYDROCHLORIDE
     Indication: GASTRIC DISORDER
     Dosage: 1 G,1X/DAY,(IN THE MORNINGS)
     Dates: start: 2002

REACTIONS (1)
  - Asthma [Not Recovered/Not Resolved]
